FAERS Safety Report 8502868-6 (Version None)
Quarter: 2012Q3

REPORT INFORMATION
  Report Type: 
  Country: None (occurrence: None)
  Receive Date: 20120705
  Receipt Date: 20120705
  Transmission Date: 20120928
  Serious: No
  Sender: FDA-Public Use
  Company Number: None

PATIENT
  Age: 61 Year
  Sex: Female
  Weight: 78.0187 kg

DRUGS (2)
  1. BYDUREON [Concomitant]
  2. BYDUREON [Suspect]
     Indication: DIABETES MELLITUS
     Dosage: 2 MG INJECTIONS ONCE A WEEK
     Dates: start: 20120605, end: 20120619

REACTIONS (2)
  - NODULE [None]
  - PANCREATITIS [None]
